FAERS Safety Report 15169339 (Version 3)
Quarter: 2018Q3

REPORT INFORMATION
  Report Type: Report from Study
  Country: GB (occurrence: GB)
  Receive Date: 20180720
  Receipt Date: 20180816
  Transmission Date: 20181010
  Serious: Yes (Death, Hospitalization)
  Sender: FDA-Public Use
  Company Number: GB-ROCHE-2157235

PATIENT
  Age: 95 Year
  Sex: Female

DRUGS (1)
  1. ACTILYSE [Suspect]
     Active Substance: ALTEPLASE
     Indication: ISCHAEMIC STROKE
     Dosage: DAILY DOSE: ONCE
     Route: 042
     Dates: start: 20180412, end: 20180412

REACTIONS (3)
  - Rib fracture [Fatal]
  - Haemothorax [Fatal]
  - Fall [Fatal]

NARRATIVE: CASE EVENT DATE: 20180413
